FAERS Safety Report 8716928 (Version 3)
Quarter: 2012Q4

REPORT INFORMATION
  Report Type: Report from Study
  Country: CA (occurrence: CA)
  Receive Date: 20120810
  Receipt Date: 20120906
  Transmission Date: 20130627
  Serious: Yes (Hospitalization, Other)
  Sender: FDA-Public Use
  Company Number: CA-JNJFOC-20120801751

PATIENT
  Age: 19 None
  Sex: Female
  Weight: 52 kg

DRUGS (3)
  1. REMICADE [Suspect]
     Indication: COLITIS ULCERATIVE
     Dosage: loading dose 2
     Route: 042
     Dates: start: 20120724
  2. REMICADE [Suspect]
     Indication: COLITIS ULCERATIVE
     Dosage: loading dose 3
     Route: 042
     Dates: start: 20120802
  3. REMICADE [Suspect]
     Indication: COLITIS ULCERATIVE
     Dosage: loading dose 1
     Route: 042
     Dates: start: 20120710

REACTIONS (5)
  - Colectomy [Unknown]
  - Malaise [Unknown]
  - Drug ineffective [Unknown]
  - Asthenia [Unknown]
  - Pallor [Unknown]
